FAERS Safety Report 22628623 (Version 2)
Quarter: 2023Q2

REPORT INFORMATION
  Report Type: Spontaneous
  Country: US (occurrence: US)
  Receive Date: 20230622
  Receipt Date: 20230629
  Transmission Date: 20230722
  Serious: Yes (Other)
  Sender: FDA-Public Use
  Company Number: US-PFIZER INC-202300223947

PATIENT
  Age: 85 Year
  Sex: Male
  Weight: 83.91 kg

DRUGS (1)
  1. FRAGMIN [Suspect]
     Active Substance: DALTEPARIN SODIUM
     Indication: Thrombosis
     Dosage: 0.6 MG, 1X/DAY (15000 IU)
     Dates: start: 1997

REACTIONS (2)
  - Coronary artery bypass [Unknown]
  - Coronary artery thrombosis [Unknown]
